FAERS Safety Report 9805178 (Version 1)
Quarter: 2014Q1

REPORT INFORMATION
  Report Type: Spontaneous
  Country: US (occurrence: US)
  Receive Date: 20140109
  Receipt Date: 20140109
  Transmission Date: 20141002
  Serious: Yes (Other)
  Sender: FDA-Public Use
  Company Number: US-BRISTOL-MYERS SQUIBB COMPANY-19952969

PATIENT
  Age: 73 Year
  Sex: Male
  Weight: 149.66 kg

DRUGS (4)
  1. BYETTA [Suspect]
     Dates: start: 20121024, end: 201306
  2. SPIRONOLACTONE [Concomitant]
  3. LEVEMIR [Concomitant]
  4. NOVOLOG [Concomitant]

REACTIONS (2)
  - Transient ischaemic attack [Unknown]
  - Abdominal discomfort [Unknown]
